FAERS Safety Report 5753835-7 (Version None)
Quarter: 2008Q2

REPORT INFORMATION
  Report Type: 
  Country: None (occurrence: None)
  Receive Date: 20080527
  Receipt Date: 20080527
  Transmission Date: 20081010
  Serious: Yes (Other)
  Sender: FDA-Public Use
  Company Number: None

PATIENT
  Age: 23 Year
  Sex: Male
  Weight: 90.7194 kg

DRUGS (1)
  1. ADVAIR DISKUS 500/50 [Suspect]
     Indication: ASTHMA
     Dosage: 1 PUFF TWICE DAILY PO
     Route: 048
     Dates: start: 20080430, end: 20080525

REACTIONS (3)
  - ANXIETY [None]
  - DEPRESSION [None]
  - MEDICATION ERROR [None]
